FAERS Safety Report 17941980 (Version 1)
Quarter: 2020Q2

REPORT INFORMATION
  Report Type: Spontaneous
  Country: US (occurrence: US)
  Receive Date: 20200624
  Receipt Date: 20200624
  Transmission Date: 20200714
  Serious: No
  Sender: FDA-Public Use
  Company Number: US-BIOMARINAP-US-2020-130432

PATIENT
  Sex: Female

DRUGS (1)
  1. PALYNZIQ [Suspect]
     Active Substance: PEGVALIASE-PQPZ
     Indication: PHENYLKETONURIA
     Dosage: 20 MILLIGRAM, QD
     Route: 058

REACTIONS (1)
  - Amino acid level decreased [Unknown]
